FAERS Safety Report 15051040 (Version 3)
Quarter: 2018Q3

REPORT INFORMATION
  Report Type: Spontaneous
  Country: US (occurrence: US)
  Receive Date: 20180622
  Receipt Date: 20180803
  Transmission Date: 20181010
  Serious: Yes (Life-Threatening, Other)
  Sender: FDA-Public Use
  Company Number: US-009507513-1806USA005510

PATIENT
  Age: 60 Year
  Sex: Female
  Weight: 88 kg

DRUGS (7)
  1. SEVOFLURANE. [Concomitant]
     Active Substance: SEVOFLURANE
     Indication: MAINTENANCE OF ANAESTHESIA
     Dosage: 0.8 MINIMUM ALVEOLAR CONCENTRATION (MAC) TITRATED TO EFFECT
  2. BRIDION [Suspect]
     Active Substance: SUGAMMADEX
     Indication: NEUROMUSCULAR BLOCKADE REVERSAL
     Dosage: 200 MG, UNK
  3. PROPOFOL. [Concomitant]
     Active Substance: PROPOFOL
     Indication: ANAESTHESIA
     Dosage: 160 MG, UNK
  4. ROCURONIUM BROMIDE. [Concomitant]
     Active Substance: ROCURONIUM BROMIDE
     Indication: ANAESTHESIA
     Dosage: 50 MG, UNK
     Route: 042
  5. SEVOFLURANE. [Concomitant]
     Active Substance: SEVOFLURANE
     Dosage: APPROXIMATELY 0.1 MINIMUM ALVEOLAR CONCENTRATION (MAC)
  6. FENTANYL. [Concomitant]
     Active Substance: FENTANYL
     Indication: ANAESTHESIA
     Dosage: 50 MICROGRAM, UNK
  7. LIDOCAINE. [Concomitant]
     Active Substance: LIDOCAINE
     Indication: ANAESTHESIA
     Dosage: 50 MG, UNK

REACTIONS (2)
  - Cardiac arrest [Recovered/Resolved]
  - Bradycardia [Recovered/Resolved]
